FAERS Safety Report 8348089-1 (Version None)
Quarter: 2012Q2

REPORT INFORMATION
  Report Type: 
  Country: None (occurrence: None)
  Receive Date: 20120509
  Receipt Date: 20100708
  Transmission Date: 20120825
  Serious: No
  Sender: FDA-Public Use
  Company Number: US-TEVA-2010003668

PATIENT
  Age: 73 Year
  Sex: Female
  Weight: 64.468 kg

DRUGS (14)
  1. TENORMIN [Concomitant]
     Indication: HYPERTENSION
  2. CLONAZEPAM [Concomitant]
     Indication: INSOMNIA
  3. NEURONTIN [Concomitant]
     Indication: MUSCLE SPASMS
  4. NUVIGIL [Suspect]
     Indication: SOMNOLENCE
     Dosage: 300 MILLIGRAM;
     Route: 048
     Dates: start: 20090901
  5. CHLORTHALIDONE [Concomitant]
     Indication: HYPERTENSION
  6. VERAPAMIL [Concomitant]
  7. REMICADE [Concomitant]
     Indication: ARTHRITIS
  8. ADVAIR DISKUS 100/50 [Concomitant]
     Indication: ASTHMA
  9. PROVENTIL [Concomitant]
     Indication: COUGH
  10. METHOTREXATE [Concomitant]
     Indication: ARTHRITIS
  11. NUVIGIL [Suspect]
     Dosage: 250 MILLIGRAM;
     Route: 048
     Dates: start: 20090901
  12. SYNTHROID [Concomitant]
     Indication: HYPOTHYROIDISM
  13. ROBAXIN [Concomitant]
     Indication: MUSCLE SPASMS
  14. COUMADIN [Concomitant]
     Indication: DEEP VEIN THROMBOSIS

REACTIONS (1)
  - DRUG INEFFECTIVE FOR UNAPPROVED INDICATION [None]
